FAERS Safety Report 4927185-2 (Version None)
Quarter: 2006Q1

REPORT INFORMATION
  Report Type: 
  Country: None (occurrence: None)
  Receive Date: 20060228
  Receipt Date: 20010410
  Transmission Date: 20060701
  Serious: No
  Sender: FDA-Public Use
  Company Number: US-GLAXOSMITHKLINE-A0144993A

PATIENT
  Age: 45 Year
  Sex: Female
  Weight: 75 kg

DRUGS (7)
  1. IMITREX [Suspect]
     Indication: MIGRAINE
     Route: 058
     Dates: start: 19930101
  2. IMITREX [Suspect]
     Route: 048
  3. PHENERGAN [Concomitant]
  4. NAPROXEN [Concomitant]
  5. PREVACID [Concomitant]
  6. OVCON-35 [Concomitant]
  7. MAXZIDE [Concomitant]

REACTIONS (7)
  - CHEST DISCOMFORT [None]
  - CHOKING SENSATION [None]
  - FEAR [None]
  - FLUSHING [None]
  - NAUSEA [None]
  - PAIN [None]
  - STOMACH DISCOMFORT [None]
